FAERS Safety Report 5370152-8 (Version None)
Quarter: 2007Q2

REPORT INFORMATION
  Report Type: 
  Country: None (occurrence: None)
  Receive Date: 20070626
  Receipt Date: 20070619
  Transmission Date: 20071010
  Serious: Yes (Other)
  Sender: FDA-Public Use
  Company Number: US-ELI_LILLY_AND_COMPANY-US200705003607

PATIENT
  Age: 66 Year
  Sex: Female
  Weight: 81.632 kg

DRUGS (12)
  1. BYETTA [Suspect]
     Dosage: UNK, DAILY (1/D)
     Dates: start: 20070101, end: 20070101
  2. AVANDIA [Concomitant]
     Indication: DIABETES MELLITUS
     Dosage: 2 MG, UNK
     Route: 048
  3. GLIPIZIDE [Concomitant]
     Indication: DIABETES MELLITUS
     Dosage: 5 MG, DAILY (1/D)
  4. CLARITIN [Concomitant]
     Indication: HYPERSENSITIVITY
     Dosage: 5 MG, UNK
  5. SINGULAIR [Concomitant]
     Indication: HYPERSENSITIVITY
  6. LORAZEPAM [Concomitant]
     Dosage: 0.5 MG, AS NEEDED
  7. DIPHENHYDRAMINE HYDROCHLORIDE [Concomitant]
     Dosage: 50 MG, UNK
  8. THYROID TAB [Concomitant]
  9. NASACORT [Concomitant]
     Dosage: 2 D/F, DAILY (1/D)
     Route: 055
  10. SEREVENT [Concomitant]
     Dosage: 2 D/F, DAILY (1/D)
     Route: 055
  11. PROVENTIL /USA/ [Concomitant]
     Dosage: UNK, AS NEEDED
  12. OXYGEN [Concomitant]
     Dosage: UNK, AS NEEDED
     Route: 055

REACTIONS (4)
  - ASTHMA [None]
  - DYSPNOEA [None]
  - FATIGUE [None]
  - HYPERSENSITIVITY [None]
